FAERS Safety Report 19472723 (Version 4)
Quarter: 2021Q3

REPORT INFORMATION
  Report Type: Spontaneous
  Country: US (occurrence: US)
  Receive Date: 20210629
  Receipt Date: 20210907
  Transmission Date: 20211014
  Serious: No
  Sender: FDA-Public Use
  Company Number: US-GLAXOSMITHKLINE-US2021AMR139524

PATIENT
  Sex: Female

DRUGS (1)
  1. ZEJULA [Suspect]
     Active Substance: NIRAPARIB
     Indication: PRODUCT USED FOR UNKNOWN INDICATION
     Dosage: 200 MG, QD
     Route: 048

REACTIONS (10)
  - Urinary tract infection [Unknown]
  - Oesophageal discomfort [Recovered/Resolved]
  - Insomnia [Unknown]
  - Condition aggravated [Unknown]
  - Gastrointestinal disorder [Recovered/Resolved]
  - Oropharyngeal discomfort [Recovered/Resolved]
  - Seasonal allergy [Unknown]
  - Ulcer [Unknown]
  - Nervousness [Unknown]
  - Oral discomfort [Recovered/Resolved]
